FAERS Safety Report 17198264 (Version 1)
Quarter: 2019Q4

REPORT INFORMATION
  Report Type: Spontaneous
  Country: IT (occurrence: IT)
  Receive Date: 20191225
  Receipt Date: 20191225
  Transmission Date: 20200122
  Serious: Yes (Other)
  Sender: FDA-Public Use
  Company Number: IT-ACCORD-166970

PATIENT
  Age: 69 Year
  Sex: Female
  Weight: 64 kg

DRUGS (5)
  1. GEMCITABINE/GEMCITABINE HYDROCHLORIDE [Suspect]
     Active Substance: GEMCITABINE\GEMCITABINE HYDROCHLORIDE
     Indication: PANCREATIC CARCINOMA METASTATIC
     Dosage: 10 MG / 1 ML
     Route: 041
     Dates: start: 20181023, end: 20181023
  2. DEXAMETHASONE PHOSPHATE HOSPIRA [Concomitant]
     Active Substance: DEXAMETHASONE PHOSPHATE
     Indication: HYPERSENSITIVITY
     Dosage: STRENGTH-4 MG / ML SOLUTION FOR INJECTION
     Route: 042
     Dates: start: 20181023, end: 20181023
  3. ABRAXANE [Suspect]
     Active Substance: PACLITAXEL
     Indication: PANCREATIC CARCINOMA METASTATIC
     Dosage: STRENGTH-5 MG / ML P
     Route: 041
     Dates: start: 20181023, end: 20181023
  4. OMEPRAZOLE. [Concomitant]
     Active Substance: OMEPRAZOLE
     Indication: HYPERCHLORHYDRIA
     Dosage: STRENGTH: 40 MG , POWDER FOR SOLUTION FOR INFUSION
     Route: 042
     Dates: start: 20181023, end: 20181023
  5. TRIMETON [Concomitant]
     Active Substance: CHLORPHENIRAMINE MALEATE
     Indication: HYPERSENSITIVITY
     Dosage: 10 MG / 1 ML SOLUTION FOR INJECTION
     Route: 042
     Dates: start: 20181023, end: 20181023

REACTIONS (4)
  - Diarrhoea [Recovered/Resolved]
  - Presyncope [Recovered/Resolved]
  - Asthenia [Recovered/Resolved]
  - Malaise [Recovered/Resolved]

NARRATIVE: CASE EVENT DATE: 20181025
